FAERS Safety Report 15154264 (Version 1)
Quarter: 2018Q3

REPORT INFORMATION
  Report Type: Spontaneous
  Country: ES (occurrence: ES)
  Receive Date: 20180717
  Receipt Date: 20180717
  Transmission Date: 20181010
  Serious: Yes (Hospitalization)
  Sender: FDA-Public Use
  Company Number: ES-JNJFOC-20180717468

PATIENT
  Age: 21 Year
  Sex: Female

DRUGS (4)
  1. IBUPROFEN. [Suspect]
     Active Substance: IBUPROFEN
     Indication: CELL DEATH
     Route: 048
     Dates: start: 20161116, end: 20161116
  2. IBUPROFEN. [Suspect]
     Active Substance: IBUPROFEN
     Route: 048
  3. PARACETAMOL/CODEINE [Suspect]
     Active Substance: ACETAMINOPHEN\CODEINE PHOSPHATE
     Indication: CELL DEATH
     Dosage: IN TOTAL
     Route: 048
     Dates: start: 20161116, end: 20161116
  4. LORAZEPAM. [Suspect]
     Active Substance: LORAZEPAM
     Indication: CELL DEATH
     Route: 048
     Dates: start: 20161116, end: 20161116

REACTIONS (1)
  - Hypertransaminasaemia [Recovered/Resolved]

NARRATIVE: CASE EVENT DATE: 20161116
